FAERS Safety Report 5923630-4 (Version None)
Quarter: 2008Q4

REPORT INFORMATION
  Report Type: 
  Country: None (occurrence: None)
  Receive Date: 20081020
  Receipt Date: 20081009
  Transmission Date: 20090506
  Serious: Yes (Death)
  Sender: FDA-Public Use
  Company Number: US-WATSON-2008-05043

PATIENT
  Age: 55 Year
  Sex: Male
  Weight: 63.5 kg

DRUGS (7)
  1. FENTANYL-75 (WATSON LABORATORIES) [Suspect]
     Indication: BACK PAIN
     Dosage: 1 PATCH SINGLE APPLICATION
     Route: 062
     Dates: start: 20080804, end: 20080804
  2. SPIRIVA [Concomitant]
     Indication: CHRONIC OBSTRUCTIVE PULMONARY DISEASE
     Dosage: UNK
     Route: 055
     Dates: end: 20080804
  3. ALBUTEROL [Concomitant]
     Indication: CHRONIC OBSTRUCTIVE PULMONARY DISEASE
     Dosage: UNK
     Route: 055
     Dates: end: 20080805
  4. NEURONTIN [Concomitant]
     Indication: NEURALGIA
     Dosage: UNK
     Route: 065
     Dates: start: 20080701, end: 20080805
  5. XANAX [Concomitant]
     Indication: ANXIETY
     Dosage: 1 TABLET, BID, PRN
     Route: 065
     Dates: end: 20080805
  6. XANAX [Concomitant]
     Indication: INSOMNIA
  7. MUSCLE RELAXANTS [Concomitant]
     Indication: BACK PAIN
     Dosage: UNK
     Route: 065
     Dates: start: 20080701, end: 20080805

REACTIONS (3)
  - ANEURYSM RUPTURED [None]
  - NARCOTIC INTOXICATION [None]
  - OVERDOSE [None]
